FAERS Safety Report 8862963 (Version 1)
Quarter: 2012Q4

REPORT INFORMATION
  Report Type: 
  Country: None (occurrence: US)
  Receive Date: 20121026
  Receipt Date: 20121026
  Transmission Date: 20130627
  Serious: No
  Sender: FDA-Public Use
  Company Number: US-ALLERGAN-1207162US

PATIENT
  Age: 93 Year
  Sex: Female

DRUGS (5)
  1. ALPHAGAN P [Suspect]
     Indication: RAISED IOP
     Dosage: 1 Gtt, bid
     Route: 047
     Dates: start: 20120517, end: 20120520
  2. ALPHAGAN P [Suspect]
     Indication: GLAUCOMA
  3. ACIPHEX [Concomitant]
     Indication: GERD
     Dosage: UNK
     Route: 048
  4. TRIAMTERENE [Concomitant]
     Indication: HYPERTENSION
     Dosage: UNK
     Route: 048
  5. LEVOTHYROXINE [Concomitant]
     Indication: HYPOTHYROIDISM
     Dosage: UNK
     Route: 048

REACTIONS (6)
  - Incorrect dose administered [Unknown]
  - Skin burning sensation [Recovering/Resolving]
  - Vision blurred [Recovering/Resolving]
  - Headache [Recovering/Resolving]
  - Eye irritation [Recovering/Resolving]
  - Eye irritation [Recovering/Resolving]
